FAERS Safety Report 21511122 (Version 1)
Quarter: 2022Q4

REPORT INFORMATION
  Report Type: Spontaneous
  Country: ES (occurrence: ES)
  Receive Date: 20221027
  Receipt Date: 20221027
  Transmission Date: 20230112
  Serious: Yes (Other)
  Sender: FDA-Public Use
  Company Number: ES-AEMPS-1274998

PATIENT
  Age: 70 Year
  Sex: Male

DRUGS (10)
  1. CLOPIDOGREL [Suspect]
     Active Substance: CLOPIDOGREL BISULFATE
     Indication: Angina pectoris
     Dosage: 75 MILLIGRAM
     Route: 048
     Dates: start: 20221006
  2. ASPIRIN [Suspect]
     Active Substance: ASPIRIN
     Indication: Angina pectoris
     Dosage: 100 MILLIGRAM
     Route: 048
     Dates: start: 20221006
  3. ELIQUIS [Suspect]
     Active Substance: APIXABAN
     Indication: Atrial fibrillation
     Dosage: 5 MILLIGRAM
     Route: 048
     Dates: start: 20220502
  4. BISOPROLOL FUMARATE [Concomitant]
     Active Substance: BISOPROLOL FUMARATE
     Indication: Angina pectoris
     Dosage: 2.5 MILLIGRAM
     Route: 048
     Dates: start: 20221006
  5. CONDROSAN [Concomitant]
     Indication: Osteoarthritis
     Dosage: 800 MILLIGRAM
     Route: 048
     Dates: start: 20160212
  6. Cafinitrina [Concomitant]
     Indication: Angina pectoris
     Dosage: 1 MILLIGRAM, ONCE A DAY
     Route: 060
     Dates: start: 20221006
  7. TAMSULOSIN HYDROCHLORIDE [Concomitant]
     Active Substance: TAMSULOSIN HYDROCHLORIDE
     Indication: Renal colic
     Dosage: 0.4 MILLIGRAM
     Route: 048
     Dates: start: 20220303
  8. PANTOPRAZOL CINFA [Concomitant]
     Indication: Aortic anastomosis
     Dosage: 40 MILLIGRAM
     Route: 048
     Dates: start: 20221006
  9. SYMBICORT [Concomitant]
     Active Substance: BUDESONIDE\FORMOTEROL FUMARATE DIHYDRATE
     Indication: Dyspnoea
     Dosage: 2.0 PUFF C/12 H
     Route: 065
     Dates: start: 20211221
  10. ATORVASTATIN CALCIUM [Concomitant]
     Active Substance: ATORVASTATIN CALCIUM
     Indication: Angina pectoris
     Dosage: 80 MILLIGRAM
     Route: 048
     Dates: start: 20221005

REACTIONS (2)
  - Haematochezia [Unknown]
  - Abdominal pain [Unknown]

NARRATIVE: CASE EVENT DATE: 20221007
